FAERS Safety Report 26048190 (Version 2)
Quarter: 2025Q4

REPORT INFORMATION
  Report Type: Spontaneous
  Country: AR (occurrence: AR)
  Receive Date: 20251114
  Receipt Date: 20251215
  Transmission Date: 20260119
  Serious: No
  Sender: PFIZER
  Company Number: AR-PFIZER INC-202500223940

PATIENT
  Sex: Female

DRUGS (1)
  1. GENOTROPIN [Suspect]
     Active Substance: SOMATROPIN
     Dosage: 1.8 MG, DAILY

REACTIONS (2)
  - Device deposit issue [Unknown]
  - Device physical property issue [Unknown]
